FAERS Safety Report 7580109-4 (Version None)
Quarter: 2011Q2

REPORT INFORMATION
  Report Type: 
  Country: None (occurrence: None)
  Receive Date: 20110629
  Receipt Date: 20110620
  Transmission Date: 20111010
  Serious: Yes (Hospitalization, Other)
  Sender: FDA-Public Use
  Company Number: CA-ELI_LILLY_AND_COMPANY-CA201106005506

PATIENT
  Sex: Female

DRUGS (16)
  1. ZYPREXA [Suspect]
     Indication: BIPOLAR DISORDER
     Dosage: 5 MG, BID
     Dates: start: 19990331
  2. LARGACTIL [Concomitant]
  3. TEGRETOL [Concomitant]
  4. SERZONE [Concomitant]
  5. DILTIAZEM [Concomitant]
  6. NORVASC [Concomitant]
  7. CLONAZEPAM [Concomitant]
  8. ELAVIL [Concomitant]
  9. LIPITOR [Concomitant]
  10. DALMANE [Concomitant]
  11. IMDUR [Concomitant]
  12. SEROQUEL [Concomitant]
  13. XANAX [Concomitant]
  14. PROCHLORPERAZINE [Concomitant]
  15. CELEXA [Concomitant]
  16. PRAVACHOL [Concomitant]

REACTIONS (7)
  - DIABETES MELLITUS [None]
  - IRON DEFICIENCY ANAEMIA [None]
  - HYPERTENSION [None]
  - LOSS OF CONSCIOUSNESS [None]
  - HEPATIC STEATOSIS [None]
  - INAPPROPRIATE ANTIDIURETIC HORMONE SECRETION [None]
  - CHEST PAIN [None]
